FAERS Safety Report 9540259 (Version 1)
Quarter: 2013Q2

REPORT INFORMATION
  Report Type: Spontaneous
  Country: US (occurrence: None)
  Receive Date: 20130530
  Receipt Date: 20130530
  Transmission Date: 20140414
  Serious: Yes (Hospitalization, Other)
  Sender: FDA-Public Use
  Company Number: 1304USA016711

PATIENT
  Sex: 0

DRUGS (1)
  1. JANUMET [Suspect]
     Indication: DIABETES MELLITUS

REACTIONS (1)
  - Pancreatitis [None]
